FAERS Safety Report 21785152 (Version 1)
Quarter: 2022Q4

REPORT INFORMATION
  Report Type: Spontaneous
  Country: IN (occurrence: IN)
  Receive Date: 20221227
  Receipt Date: 20221227
  Transmission Date: 20230113
  Serious: Yes (Other)
  Sender: FDA-Public Use
  Company Number: IN-MYLANLABS-2022M1147463

PATIENT
  Sex: Female

DRUGS (1)
  1. PHENYTOIN [Suspect]
     Active Substance: PHENYTOIN
     Indication: Seizure
     Dosage: UNK
     Route: 065

REACTIONS (10)
  - Rickets [Recovering/Resolving]
  - Hypothyroidism [Recovered/Resolved]
  - Calcium metabolism disorder [Recovering/Resolving]
  - Dwarfism [Recovering/Resolving]
  - Knee deformity [Recovering/Resolving]
  - Hyporeflexia [Recovering/Resolving]
  - Dry skin [Recovering/Resolving]
  - Gingival hypertrophy [Recovering/Resolving]
  - Cerebellar atrophy [Recovering/Resolving]
  - Toxicity to various agents [Recovering/Resolving]
